FAERS Safety Report 5464848-7 (Version None)
Quarter: 2007Q3

REPORT INFORMATION
  Report Type: 
  Country: None (occurrence: None)
  Receive Date: 20070921
  Receipt Date: 20070910
  Transmission Date: 20080115
  Serious: Yes (Other)
  Sender: FDA-Public Use
  Company Number: US-PFIZER INC-2007076259

PATIENT
  Sex: Female
  Weight: 90.9 kg

DRUGS (4)
  1. CHANTIX [Suspect]
     Indication: SMOKING CESSATION THERAPY
     Route: 048
     Dates: start: 20070827, end: 20070907
  2. ABILIFY [Interacting]
     Indication: BIPOLAR DISORDER
  3. SEROQUEL [Interacting]
     Indication: BIPOLAR DISORDER
  4. ADVAIR DISKUS 100/50 [Concomitant]

REACTIONS (8)
  - ABNORMAL DREAMS [None]
  - COGNITIVE DISORDER [None]
  - DEPRESSION [None]
  - DISORIENTATION [None]
  - DRUG INTERACTION [None]
  - FLATULENCE [None]
  - INFLUENZA LIKE ILLNESS [None]
  - MOOD ALTERED [None]
